FAERS Safety Report 5705432-7 (Version None)
Quarter: 2008Q2

REPORT INFORMATION
  Report Type: 
  Country: None (occurrence: None)
  Receive Date: 20080415
  Receipt Date: 20080403
  Transmission Date: 20081010
  Serious: Yes (Other)
  Sender: FDA-Public Use
  Company Number: HQWYE344809JUN05

PATIENT
  Sex: Female

DRUGS (1)
  1. PREMARIN [Suspect]
     Indication: HOT FLUSH
     Dosage: UNKNOWN
     Route: 067
     Dates: start: 19770101, end: 20030401

REACTIONS (1)
  - BREAST CANCER METASTATIC [None]
